FAERS Safety Report 24385017 (Version 4)
Quarter: 2024Q4

REPORT INFORMATION
  Report Type: Report from Study
  Country: MX (occurrence: MX)
  Receive Date: 20241001
  Receipt Date: 20241203
  Transmission Date: 20250114
  Serious: Yes (Hospitalization, Other)
  Sender: INCYTE
  Company Number: MX-002147023-NVSC2024MX045266

PATIENT

DRUGS (14)
  1. RUXOLITINIB [Suspect]
     Active Substance: RUXOLITINIB
     Indication: Primary myelofibrosis
     Dosage: 5 MG, BID
     Route: 048
  2. RUXOLITINIB [Suspect]
     Active Substance: RUXOLITINIB
     Dosage: 25 MG, BID (2 DAYS AGO, MORNING/ NIGHT)
     Route: 048
  3. RUXOLITINIB [Suspect]
     Active Substance: RUXOLITINIB
     Dosage: UNK
     Route: 048
  4. RUXOLITINIB [Suspect]
     Active Substance: RUXOLITINIB
     Dosage: 5 MG, BID (ONE IN THE MORNING AND ONE IN THE AFTERNOON)
     Route: 048
  5. RUXOLITINIB [Suspect]
     Active Substance: RUXOLITINIB
     Dosage: 15 MG, BID (1 TABLET IN THE MORNING AND 1 IN THE AFTERNOON)
     Route: 048
  6. RUXOLITINIB [Suspect]
     Active Substance: RUXOLITINIB
     Dosage: 5 MG, 2 IN THE MORNING AND 2 AT NIGHTQ12H
     Route: 048
  7. RUXOLITINIB [Suspect]
     Active Substance: RUXOLITINIB
     Dosage: 10 MG, (2 X 5MG) Q12H
     Route: 048
     Dates: start: 202402, end: 202403
  8. RUXOLITINIB [Suspect]
     Active Substance: RUXOLITINIB
     Dosage: 15 MG, (1 X 15MG) Q12H
     Route: 048
     Dates: start: 202403, end: 202404
  9. RUXOLITINIB [Suspect]
     Active Substance: RUXOLITINIB
     Dosage: 10 MG, (2 X 5MG) Q12H EVERY 12 HOURS/ IN THE MORNING/ IN THE AFTERNOON/ TWICE A DAY
     Route: 048
     Dates: start: 202404
  10. RUXOLITINIB [Suspect]
     Active Substance: RUXOLITINIB
     Dosage: 15 MG, BID (1 DF)
     Route: 048
  11. RUXOLITINIB [Suspect]
     Active Substance: RUXOLITINIB
     Dosage: 2 DOSAGE FORM, Q12H (2 OF 15 MG )
     Route: 048
     Dates: start: 202404
  12. RUXOLITINIB [Suspect]
     Active Substance: RUXOLITINIB
     Dosage: 15 MG, (1 X 15MG) Q12H
     Route: 048
     Dates: start: 2024
  13. LOSARTAN [Concomitant]
     Active Substance: LOSARTAN
     Indication: Hypertension
     Dosage: 50 MG, QD 1 X 50 MG, QD
     Route: 048
     Dates: start: 2022
  14. OMEPRAZOLE SODIUM [Concomitant]
     Active Substance: OMEPRAZOLE SODIUM
     Indication: Dyspepsia
     Dosage: 1 DOSAGE FORM, QD
     Route: 048
     Dates: start: 2023

REACTIONS (17)
  - Anaemia [Unknown]
  - Splenomegaly [Recovering/Resolving]
  - Arrhythmia [Recovering/Resolving]
  - Gait disturbance [Unknown]
  - Feeling of despair [Not Recovered/Not Resolved]
  - Pyrexia [Recovered/Resolved]
  - Illness [Unknown]
  - Ludwig angina [Recovered/Resolved]
  - Arthralgia [Recovered/Resolved]
  - Drug ineffective [Unknown]
  - Mobility decreased [Not Recovered/Not Resolved]
  - Malaise [Recovered/Resolved]
  - Dyspnoea [Unknown]
  - Ear discomfort [Unknown]
  - Peripheral swelling [Unknown]
  - Nocturia [Unknown]
  - Asthenia [Recovering/Resolving]

NARRATIVE: CASE EVENT DATE: 20240324
